FAERS Safety Report 5008235-4 (Version None)
Quarter: 2006Q2

REPORT INFORMATION
  Report Type: 
  Country: None (occurrence: None)
  Receive Date: 20060523
  Receipt Date: 20051109
  Transmission Date: 20061013
  Serious: Yes (Hospitalization)
  Sender: FDA-Public Use
  Company Number: 2005CG01846

PATIENT
  Age: 80 Year
  Sex: Female

DRUGS (3)
  1. ARIMIDEX [Suspect]
     Indication: BREAST CANCER
     Route: 048
     Dates: start: 20040510, end: 20051001
  2. ENDOTELON [Concomitant]
     Route: 048
     Dates: end: 20050811
  3. VASTAREL [Concomitant]
     Route: 048
     Dates: end: 20050811

REACTIONS (5)
  - ASTHENIA [None]
  - DIPLOPIA [None]
  - MUSCULAR WEAKNESS [None]
  - NEUROLOGICAL SYMPTOM [None]
  - PARAESTHESIA [None]
